FAERS Safety Report 4712882-4 (Version None)
Quarter: 2005Q3

REPORT INFORMATION
  Report Type: 
  Country: None (occurrence: None)
  Receive Date: 20050712
  Receipt Date: 20050712
  Transmission Date: 20060218
  Serious: Yes (Other)
  Sender: FDA-Public Use
  Company Number: None

PATIENT
  Sex: Male
  Weight: 150 kg

DRUGS (1)
  1. INTERERFERON-ALPHA [Suspect]
     Indication: RENAL CELL CARCINOMA STAGE UNSPECIFIED
     Dosage: 9.0 MU SC 3X/WEEK.  CYCLE = 4 WEEKS.
     Route: 058
     Dates: start: 20050223

REACTIONS (11)
  - ATELECTASIS [None]
  - BLOOD GLUCOSE DECREASED [None]
  - CHEST PAIN [None]
  - HYPOTENSION [None]
  - LUNG INFILTRATION [None]
  - NAUSEA [None]
  - PLEURITIC PAIN [None]
  - PNEUMONIA [None]
  - PULMONARY ARTERY THROMBOSIS [None]
  - PYREXIA [None]
  - VOMITING [None]
